FAERS Safety Report 23456002 (Version 2)
Quarter: 2024Q3

REPORT INFORMATION
  Report Type: Spontaneous
  Country: CA (occurrence: None)
  Receive Date: 20240130
  Receipt Date: 20240724
  Transmission Date: 20241017
  Serious: Yes (Other)
  Sender: ORION
  Company Number: CA-PFIZER INC-202300356447

PATIENT
  Age: 38 Year
  Sex: Female

DRUGS (7)
  1. METHOTREXATE [Suspect]
     Active Substance: METHOTREXATE
     Indication: Product used for unknown indication
     Dates: start: 202012, end: 2021
  2. METHOTREXATE [Suspect]
     Active Substance: METHOTREXATE
     Dates: start: 20211220, end: 202310
  3. LEFLUNOMIDE [Concomitant]
     Active Substance: LEFLUNOMIDE
  4. LEFLUNOMIDE [Concomitant]
     Active Substance: LEFLUNOMIDE
     Dates: start: 20220323
  5. SULFASALAZINE [Concomitant]
     Active Substance: SULFASALAZINE
  6. SULFASALAZINE [Concomitant]
     Active Substance: SULFASALAZINE
     Dates: start: 20220205
  7. SULFASALAZINE [Concomitant]
     Active Substance: SULFASALAZINE
     Dates: start: 20220226

REACTIONS (6)
  - Crohn^s disease [Not Recovered/Not Resolved]
  - Abdominal pain [Unknown]
  - Aspartate aminotransferase increased [Unknown]
  - Fatigue [Unknown]
  - Joint swelling [Not Recovered/Not Resolved]
  - Gastrointestinal toxicity [Unknown]

NARRATIVE: CASE EVENT DATE: 20231001
